FAERS Safety Report 8424270 (Version 4)
Quarter: 2013Q1

REPORT INFORMATION
  Report Type: Spontaneous
  Country: ZA (occurrence: ZA)
  Receive Date: 20120224
  Receipt Date: 20130311
  Transmission Date: 20140127
  Serious: No
  Sender: FDA-Public Use
  Company Number: ZA-JNJFOC-20120208708

PATIENT
  Age: 44 None
  Sex: Male
  Weight: 87 kg

DRUGS (6)
  1. DUROGESIC [Suspect]
     Indication: BACK PAIN
     Route: 062
  2. DUROGESIC [Suspect]
     Indication: BACK PAIN
     Route: 062
  3. DUROGESIC [Suspect]
     Indication: BACK PAIN
     Route: 062
     Dates: start: 201101
  4. VELTEX [Concomitant]
     Indication: ANTIINFLAMMATORY THERAPY
     Route: 048
  5. VELTEX [Concomitant]
     Indication: ANTIINFLAMMATORY THERAPY
     Route: 048
  6. PAIN MEDICATION [Concomitant]
     Indication: PAIN
     Route: 065

REACTIONS (7)
  - Drug administration error [Not Recovered/Not Resolved]
  - Wrong technique in drug usage process [Unknown]
  - Hyperhidrosis [Recovered/Resolved]
  - Drug ineffective [Recovered/Resolved]
  - Nausea [Recovered/Resolved]
  - Pruritus [Recovered/Resolved]
  - Weight decreased [Recovered/Resolved]
